FAERS Safety Report 12262921 (Version 2)
Quarter: 2016Q2

REPORT INFORMATION
  Report Type: Spontaneous
  Country: US (occurrence: US)
  Receive Date: 20160413
  Receipt Date: 20160620
  Transmission Date: 20160815
  Serious: No
  Sender: FDA-Public Use
  Company Number: US-TEVA-649862USA

PATIENT
  Age: 24 Year
  Sex: Female
  Weight: 55.84 kg

DRUGS (3)
  1. PROVIGIL [Suspect]
     Active Substance: MODAFINIL
     Dosage: 100 MILLIGRAM DAILY;
     Dates: start: 20160331, end: 20160403
  2. GESTRA ESTRADIOL BIRTH CONTROL [Concomitant]
     Indication: CONTRACEPTION
  3. PROVIGIL [Suspect]
     Active Substance: MODAFINIL
     Indication: HYPERSOMNIA
     Dosage: 100 MILLIGRAM DAILY;
     Dates: start: 20160321, end: 20160324

REACTIONS (2)
  - Stomatitis [Unknown]
  - Off label use [Unknown]

NARRATIVE: CASE EVENT DATE: 20160403
